FAERS Safety Report 16650941 (Version 1)
Quarter: 2019Q3

REPORT INFORMATION
  Report Type: Spontaneous
  Country: US (occurrence: US)
  Receive Date: 20190617
  Receipt Date: 20190617
  Transmission Date: 20191004
  Serious: No
  Sender: FDA-Public Use
  Company Number: None

PATIENT
  Age: 51 Year
  Sex: Female

DRUGS (1)
  1. IMATINIB MES TAB 100MG [Suspect]
     Active Substance: IMATINIB MESYLATE
     Indication: SOFT TISSUE SARCOMA
     Dates: start: 201904

REACTIONS (5)
  - Oedema peripheral [None]
  - Tenderness [None]
  - Lower limb fracture [None]
  - Vaginal haemorrhage [None]
  - Vaginal disorder [None]

NARRATIVE: CASE EVENT DATE: 20190603
